FAERS Safety Report 8367610-0 (Version None)
Quarter: 2012Q1

REPORT INFORMATION
  Report Type: 
  Country: None (occurrence: None)
  Receive Date: 20120323
  Receipt Date: 20110729
  Transmission Date: 20120608
  Serious: Yes (Other)
  Sender: FDA-Public Use
  Company Number: 163-21880-11080077

PATIENT
  Age: 80 Year
  Sex: Male
  Weight: 77.1115 kg

DRUGS (3)
  1. ORAL HYPOGLYCEMIC (DRUGS FOR TREATMENT OF HYPOGLYCEMIA) [Concomitant]
  2. LISINOPRIL [Concomitant]
  3. REVLIMID [Suspect]
     Indication: MYELODYSPLASTIC SYNDROME
     Dosage: 5 MG, PO
     Route: 048
     Dates: start: 20110531

REACTIONS (2)
  - NO THERAPEUTIC RESPONSE [None]
  - PLATELET COUNT DECREASED [None]
